FAERS Safety Report 8556679-6 (Version None)
Quarter: 2012Q3

REPORT INFORMATION
  Report Type: 
  Country: None (occurrence: None)
  Receive Date: 20120726
  Receipt Date: 20120726
  Transmission Date: 20120928
  Serious: Yes (Other)
  Sender: FDA-Public Use
  Company Number: None

PATIENT
  Age: 78 Year
  Sex: Female

DRUGS (1)
  1. BENAZEPRIL HYDROCHLORIDE [Suspect]
     Indication: HYPERTENSION
     Dosage: 20MG ONCE A DAY PO
     Route: 048

REACTIONS (8)
  - THIRST [None]
  - ASTHENIA [None]
  - ABDOMINAL DISCOMFORT [None]
  - IRRITABLE BOWEL SYNDROME [None]
  - DYSPHONIA [None]
  - ARRHYTHMIA [None]
  - DYSPNOEA [None]
  - MUSCLE SPASMS [None]
